FAERS Safety Report 16909950 (Version 1)
Quarter: 2019Q4

REPORT INFORMATION
  Report Type: Spontaneous
  Country: CN (occurrence: CN)
  Receive Date: 20191011
  Receipt Date: 20191011
  Transmission Date: 20200122
  Serious: Yes (Other)
  Sender: FDA-Public Use
  Company Number: CN-BAYER-2019-179313

PATIENT
  Age: 82 Year
  Sex: Female
  Weight: 54 kg

DRUGS (1)
  1. STIVARGA [Suspect]
     Active Substance: REGORAFENIB
     Indication: TARGETED CANCER THERAPY
     Dosage: 160 MG, QD
     Route: 048
     Dates: start: 20190822

REACTIONS (2)
  - Muscular weakness [Recovered/Resolved]
  - Electrolyte imbalance [Recovered/Resolved]

NARRATIVE: CASE EVENT DATE: 20190904
